FAERS Safety Report 18509273 (Version 2)
Quarter: 2020Q4

REPORT INFORMATION
  Report Type: Spontaneous
  Country: US (occurrence: US)
  Receive Date: 20201117
  Receipt Date: 20201127
  Transmission Date: 20210114
  Serious: Yes (Hospitalization)
  Sender: FDA-Public Use
  Company Number: US-GW PHARMA-202011USGW03877

PATIENT

DRUGS (2)
  1. EPIDIOLEX [Suspect]
     Active Substance: CANNABIDIOL
     Indication: LENNOX-GASTAUT SYNDROME
     Dosage: 14.59 MG/KG/DAY, 810 MILLIGRAM, BID
     Route: 048
     Dates: start: 20191107
  2. EPIDIOLEX [Suspect]
     Active Substance: CANNABIDIOL
     Dosage: 19.81 MG/KG/DAY, 1100 MILLIGRAM, BID
     Route: 048

REACTIONS (1)
  - Seizure [Unknown]

NARRATIVE: CASE EVENT DATE: 20201103
